FAERS Safety Report 9453621 (Version 1)
Quarter: 2013Q3

REPORT INFORMATION
  Report Type: Spontaneous
  Country: US (occurrence: None)
  Receive Date: 20130809
  Receipt Date: 20130809
  Transmission Date: 20140515
  Serious: No
  Sender: FDA-Public Use
  Company Number: None

PATIENT
  Age: 61 Year
  Sex: Female

DRUGS (1)
  1. TEMAZEPAM [Suspect]
     Indication: SLEEP DISORDER
     Dosage: ^FOR A WHILE^

REACTIONS (1)
  - Drug ineffective [None]
